FAERS Safety Report 24686867 (Version 1)
Quarter: 2024Q4

REPORT INFORMATION
  Report Type: Spontaneous
  Country: CN (occurrence: CN)
  Receive Date: 20241202
  Receipt Date: 20241202
  Transmission Date: 20250114
  Serious: Yes (Hospitalization)
  Sender: MYLAN
  Company Number: CN-MYLANLABS-2024M1106023

PATIENT
  Age: 92 Year
  Sex: Female
  Weight: 71 kg

DRUGS (2)
  1. CELEBREX [Suspect]
     Active Substance: CELECOXIB
     Indication: Pain in extremity
     Dosage: 1 DOSAGE FORM, QD
     Route: 048
     Dates: start: 20240921, end: 20241012
  2. CLOPIDOGREL BISULFATE [Suspect]
     Active Substance: CLOPIDOGREL BISULFATE
     Indication: Antiplatelet therapy
     Dosage: 50 MILLIGRAM, QD (2 TABLETS EACH TIME)
     Route: 048
     Dates: start: 20231110, end: 20241012

REACTIONS (2)
  - Upper gastrointestinal haemorrhage [Recovering/Resolving]
  - Drug ineffective [Unknown]

NARRATIVE: CASE EVENT DATE: 20241005
